FAERS Safety Report 6416126-7 (Version None)
Quarter: 2009Q4

REPORT INFORMATION
  Report Type: 
  Country: None (occurrence: None)
  Receive Date: 20091027
  Receipt Date: 20091015
  Transmission Date: 20100525
  Serious: Yes (Hospitalization)
  Sender: FDA-Public Use
  Company Number: FR-AVENTIS-200913819FR

PATIENT
  Age: 53 Year
  Sex: Male

DRUGS (3)
  1. SOLUPRED                           /00016201/ [Suspect]
     Indication: INFECTION
     Route: 048
     Dates: start: 20090118, end: 20090123
  2. TELFAST                            /01314201/ [Suspect]
     Route: 048
     Dates: start: 20090119, end: 20090125
  3. AMOXICILLINE BASE [Suspect]
     Indication: INFECTION
     Route: 048
     Dates: start: 20090118, end: 20090119

REACTIONS (2)
  - CYTOLYTIC HEPATITIS [None]
  - PANCREATITIS ACUTE [None]
